FAERS Safety Report 5405247-3 (Version None)
Quarter: 2007Q3

REPORT INFORMATION
  Report Type: 
  Country: None (occurrence: None)
  Receive Date: 20070803
  Receipt Date: 20061212
  Transmission Date: 20080115
  Serious: Yes (Other)
  Sender: FDA-Public Use
  Company Number: US-BRISTOL-MYERS SQUIBB COMPANY-13612528

PATIENT
  Age: 8 Year
  Sex: Female
  Weight: 37 kg

DRUGS (1)
  1. CEENU [Suspect]
     Route: 048

REACTIONS (1)
  - MEDICATION ERROR [None]
